FAERS Safety Report 9877011 (Version 2)
Quarter: 2014Q1

REPORT INFORMATION
  Report Type: Spontaneous
  Country: JP (occurrence: JP)
  Receive Date: 20140206
  Receipt Date: 20140225
  Transmission Date: 20141002
  Serious: Yes (Other)
  Sender: FDA-Public Use
  Company Number: JP-ASTRAZENECA-2014SE07695

PATIENT
  Age: 36 Year
  Sex: Female

DRUGS (1)
  1. ZOMIG RM [Suspect]
     Route: 048

REACTIONS (1)
  - Deafness [Unknown]
